FAERS Safety Report 7502580-6 (Version None)
Quarter: 2011Q2

REPORT INFORMATION
  Report Type: 
  Country: None (occurrence: None)
  Receive Date: 20110517
  Receipt Date: 20110504
  Transmission Date: 20111010
  Serious: Yes (Other)
  Sender: FDA-Public Use
  Company Number: MC201100052

PATIENT
  Age: 76 Year
  Sex: Female
  Weight: 103.9 kg

DRUGS (4)
  1. AXICODON [Concomitant]
  2. ANGIOMAX [Suspect]
     Indication: ANGIOPLASTY
     Dosage: 16 ML, BOLUS, INTRAVENOUS ; 37 ML, HR, INTRAVENOUS
     Route: 042
     Dates: start: 20110118, end: 20110118
  3. ANGIOMAX [Suspect]
     Indication: ANGIOPLASTY
     Dosage: 16 ML, BOLUS, INTRAVENOUS ; 37 ML, HR, INTRAVENOUS
     Route: 042
     Dates: start: 20110118, end: 20110118
  4. CONTRAST MEDIA [Concomitant]

REACTIONS (2)
  - SWOLLEN TONGUE [None]
  - ANAPHYLACTIC SHOCK [None]
